FAERS Safety Report 25322883 (Version 1)
Quarter: 2025Q2

REPORT INFORMATION
  Report Type: Spontaneous
  Country: US (occurrence: US)
  Receive Date: 20250516
  Receipt Date: 20250516
  Transmission Date: 20250716
  Serious: Yes (Hospitalization)
  Sender: NOVITIUM PHARMA
  Company Number: US-NOVITIUMPHARMA-2025USNVP01143

PATIENT
  Age: 50 Year
  Sex: Female

DRUGS (7)
  1. PREDNISONE [Suspect]
     Active Substance: PREDNISONE
     Indication: Pancreatitis
  2. PREDNISONE [Suspect]
     Active Substance: PREDNISONE
  3. NIVOLUMAB [Concomitant]
     Active Substance: NIVOLUMAB
     Indication: Sclerosing epithelioid fibrosarcoma
  4. IPILIMUMAB [Concomitant]
     Active Substance: IPILIMUMAB
     Indication: Sclerosing epithelioid fibrosarcoma
  5. MYCOPHENOLATE MOFETIL [Concomitant]
     Active Substance: MYCOPHENOLATE MOFETIL
  6. MYCOPHENOLATE SODIUM [Concomitant]
     Active Substance: MYCOPHENOLATE SODIUM
  7. AZATHIOPRINE [Concomitant]
     Active Substance: AZATHIOPRINE

REACTIONS (1)
  - Rebound effect [Unknown]
